FAERS Safety Report 17700144 (Version 1)
Quarter: 2020Q2

REPORT INFORMATION
  Report Type: Spontaneous
  Country: US (occurrence: US)
  Receive Date: 20200423
  Receipt Date: 20200423
  Transmission Date: 20200714
  Serious: No
  Sender: FDA-Public Use
  Company Number: US-ASTELLAS-2020US013136

PATIENT
  Age: 70 Year
  Sex: Male

DRUGS (4)
  1. LEXISCAN [Suspect]
     Active Substance: REGADENOSON
     Indication: PRODUCT USED FOR UNKNOWN INDICATION
     Dosage: 0.4 MG/5 ML SINGLE DOSE PRE-FILLED
     Route: 065
     Dates: start: 20200408, end: 20200408
  2. LEXISCAN [Suspect]
     Active Substance: REGADENOSON
     Indication: PRODUCT USED FOR UNKNOWN INDICATION
     Dosage: 0.4 MG/5 ML SINGLE DOSE PRE-FILLED
     Route: 065
     Dates: start: 20200408, end: 20200408
  3. LEXISCAN [Suspect]
     Active Substance: REGADENOSON
     Indication: PRODUCT USED FOR UNKNOWN INDICATION
     Dosage: 0.4 MG/5 ML SINGLE DOSE PRE-FILLED
     Route: 065
     Dates: start: 20200408, end: 20200408
  4. LEXISCAN [Suspect]
     Active Substance: REGADENOSON
     Indication: PRODUCT USED FOR UNKNOWN INDICATION
     Dosage: 0.4 MG/5 ML SINGLE DOSE PRE-FILLED
     Route: 065
     Dates: start: 20200408, end: 20200408

REACTIONS (3)
  - Urticaria [Recovered/Resolved]
  - Hypoaesthesia oral [Recovered/Resolved]
  - Lip swelling [Recovered/Resolved]

NARRATIVE: CASE EVENT DATE: 20200408
